FAERS Safety Report 4738467-1 (Version None)
Quarter: 2005Q3

REPORT INFORMATION
  Report Type: 
  Country: None (occurrence: None)
  Receive Date: 20050803
  Receipt Date: 20050727
  Transmission Date: 20060218
  Serious: Yes (Death)
  Sender: FDA-Public Use
  Company Number: KR-2005-11359

PATIENT
  Age: 60 Year
  Sex: Male

DRUGS (1)
  1. 52054 [Suspect]
     Indication: COMPUTERISED TOMOGRAM ABDOMEN
     Dosage: UNK ML, 1 DOSE, INTRAVENOUS
     Route: 042
     Dates: start: 20050623, end: 20050623

REACTIONS (4)
  - ACUTE MYOCARDIAL INFARCTION [None]
  - CEREBRAL HAEMORRHAGE [None]
  - HEPATIC NEOPLASM MALIGNANT [None]
  - RESUSCITATION [None]
